FAERS Safety Report 6044275-4 (Version None)
Quarter: 2009Q1

REPORT INFORMATION
  Report Type: 
  Country: None (occurrence: None)
  Receive Date: 20090120
  Receipt Date: 20090112
  Transmission Date: 20090719
  Serious: Yes (Hospitalization)
  Sender: FDA-Public Use
  Company Number: GB-ASTRAZENECA-2009GB00262

PATIENT
  Age: 44 Year
  Sex: Female

DRUGS (3)
  1. MARCAIN POLYAMP STERIPACK 0.25% [Suspect]
     Indication: NERVE BLOCK
     Route: 037
     Dates: start: 20090107, end: 20090107
  2. SALINE [Suspect]
     Dosage: MIXED WITH MARCAIN
     Route: 037
     Dates: start: 20090107, end: 20090107
  3. DIAMORPHINE [Concomitant]
     Indication: ANALGESIC THERAPY
     Dosage: 500MCG

REACTIONS (2)
  - DRUG EFFECT PROLONGED [None]
  - GAIT DISTURBANCE [None]
